FAERS Safety Report 6287672-4 (Version None)
Quarter: 2009Q3

REPORT INFORMATION
  Report Type: 
  Country: None (occurrence: None)
  Receive Date: 20090727
  Receipt Date: 20090727
  Transmission Date: 20100115
  Serious: Yes (Other)
  Sender: FDA-Public Use
  Company Number: None

PATIENT
  Age: 47 Year
  Sex: Male
  Weight: 90.7194 kg

DRUGS (1)
  1. DIVALPROEX SODIUM [Suspect]
     Indication: BIPOLAR DISORDER
     Dosage: 500 MG, 1 AM, 2 PM, PO
     Route: 048
     Dates: start: 20090712, end: 20090723

REACTIONS (5)
  - AGGRESSION [None]
  - BIPOLAR DISORDER [None]
  - CONDITION AGGRAVATED [None]
  - LEGAL PROBLEM [None]
  - PHYSICAL ASSAULT [None]
